FAERS Safety Report 9329295 (Version 1)
Quarter: 2013Q2

REPORT INFORMATION
  Report Type: Spontaneous
  Country: US (occurrence: US)
  Receive Date: 20130604
  Receipt Date: 20130604
  Transmission Date: 20140414
  Serious: No
  Sender: FDA-Public Use
  Company Number: US-009507513-1305USA014660

PATIENT
  Age: 3 Year
  Sex: Male
  Weight: 14.06 kg

DRUGS (2)
  1. CLARITIN ORAL SOLUTION [Suspect]
     Indication: SEASONAL ALLERGY
     Dosage: 5 MG, BID
     Route: 048
     Dates: start: 20130517, end: 20130517
  2. CLARITIN ORAL SOLUTION [Suspect]
     Dosage: 5 MG, QD
     Route: 048
     Dates: start: 20130512

REACTIONS (2)
  - Accidental overdose [Recovering/Resolving]
  - No adverse event [Recovering/Resolving]
